FAERS Safety Report 4870730-6 (Version None)
Quarter: 2005Q4

REPORT INFORMATION
  Report Type: 
  Country: None (occurrence: None)
  Receive Date: 20051228
  Receipt Date: 20051213
  Transmission Date: 20060501
  Serious: Yes (Hospitalization)
  Sender: FDA-Public Use
  Company Number: CLOF-10171

PATIENT
  Age: 14 Year
  Sex: Male

DRUGS (28)
  1. CLOFARABINE [Suspect]
     Indication: ACUTE LYMPHOCYTIC LEUKAEMIA
     Dosage: 52 MG/M2 QD X 5 IV
     Route: 042
     Dates: start: 20051122, end: 20051126
  2. ITRACONAZOLE [Concomitant]
  3. CHLORPHENIRAMINE MALEATE [Concomitant]
  4. HYDROCORTISONE [Concomitant]
  5. PETHIDINE [Concomitant]
  6. CEFUROXIME [Concomitant]
  7. GENTAMICIN [Concomitant]
  8. LEVOMEPROMAZINE [Concomitant]
  9. PANTOPRAZOLE [Concomitant]
  10. CYCLIZINE [Concomitant]
  11. GRANISETRON [Concomitant]
  12. OMEPRAZOLE [Concomitant]
  13. CEFUROXIME [Concomitant]
  14. GENTAMICIN [Concomitant]
  15. ALLOPURINOL [Concomitant]
  16. NOZINAN [Concomitant]
  17. SLOW-K [Concomitant]
  18. MAGNESIUM ASPARATATE [Concomitant]
  19. FRUSEMIDE [Concomitant]
  20. FOLIC ACID [Concomitant]
  21. PARACETAMOL [Concomitant]
  22. DEXAMETHASONE TAB [Concomitant]
  23. ACYCLOVIR [Concomitant]
  24. PENICILLIN V [Concomitant]
  25. TEMAZEPAM [Concomitant]
  26. MELATONIN [Concomitant]
  27. AMILORIDE HCL [Concomitant]
  28. SEPTRIN [Concomitant]

REACTIONS (17)
  - ALANINE AMINOTRANSFERASE INCREASED [None]
  - APLASIA [None]
  - ATELECTASIS [None]
  - BLOOD BILIRUBIN INCREASED [None]
  - BLOOD CULTURE POSITIVE [None]
  - CHEST PAIN [None]
  - DRUG INTERACTION [None]
  - FUNGAL INFECTION [None]
  - HYPONATRAEMIA [None]
  - KLEBSIELLA INFECTION [None]
  - NAUSEA [None]
  - NEUTROPENIA [None]
  - PERICARDIAL EFFUSION [None]
  - PLEURAL EFFUSION [None]
  - PNEUMONIA KLEBSIELLA [None]
  - TRANSAMINASES DECREASED [None]
  - VOMITING [None]
